FAERS Safety Report 7908555-7 (Version None)
Quarter: 2011Q4

REPORT INFORMATION
  Report Type: 
  Country: None (occurrence: None)
  Receive Date: 20111111
  Receipt Date: 20111110
  Transmission Date: 20120403
  Serious: Yes (Other)
  Sender: FDA-Public Use
  Company Number: FI-PFIZER INC-2011275203

PATIENT
  Age: 59 Year
  Sex: Female

DRUGS (5)
  1. VARENICLINE TARTRATE [Suspect]
     Dosage: 1 MG, 2X/DAY
  2. VARENICLINE TARTRATE [Suspect]
     Dosage: 0.5 MG, UNK
  3. AIROMIR [Concomitant]
     Dosage: UNK
  4. VARENICLINE TARTRATE [Suspect]
     Dosage: 0.5 MG, UNK
  5. OPAMOX [Concomitant]
     Indication: STRESS
     Dosage: UNK

REACTIONS (2)
  - CARDIAC DISCOMFORT [None]
  - ARRHYTHMIA [None]
